FAERS Safety Report 17749960 (Version 2)
Quarter: 2020Q2

REPORT INFORMATION
  Report Type: Report from Study
  Country: IN (occurrence: IN)
  Receive Date: 20200506
  Receipt Date: 20200520
  Transmission Date: 20200714
  Serious: Yes (Other)
  Sender: FDA-Public Use
  Company Number: NVSC2020IN008583

PATIENT
  Age: 41 Year
  Sex: Male
  Weight: 76 kg

DRUGS (4)
  1. GALVUS MET [Suspect]
     Active Substance: METFORMIN HYDROCHLORIDE\VILDAGLIPTIN
     Dosage: 1 DF (METFORMIN 1000 MG, VILDAGLIPTIN 50 MG), BID (1-0-1)
     Route: 048
  2. DIAMICRON [Concomitant]
     Active Substance: GLICLAZIDE
     Indication: DIABETES MELLITUS
     Dosage: UNK
     Route: 048
  3. GALVUS MET [Suspect]
     Active Substance: METFORMIN HYDROCHLORIDE\VILDAGLIPTIN
     Dosage: 1 DF (METFORMIN 500 MG, VILDAGLIPTIN 50 MG), BID (1-0-1)
     Route: 048
  4. GALVUS MET [Suspect]
     Active Substance: METFORMIN HYDROCHLORIDE\VILDAGLIPTIN
     Indication: DIABETES MELLITUS
     Dosage: 1 DF (METFORMIN 1000 MG, VILDAGLIPTIN 50 MG), BID (1-0-1)
     Route: 048

REACTIONS (5)
  - Stress fracture [Unknown]
  - Hyperglycaemia [Recovering/Resolving]
  - Ligament sprain [Unknown]
  - Glycosylated haemoglobin increased [Unknown]
  - Stress [Unknown]

NARRATIVE: CASE EVENT DATE: 20200110
